FAERS Safety Report 12253386 (Version 3)
Quarter: 2016Q2

REPORT INFORMATION
  Report Type: Report from Study
  Country: US (occurrence: US)
  Receive Date: 20160411
  Receipt Date: 20160504
  Transmission Date: 20160815
  Serious: Yes (Hospitalization, Other)
  Sender: FDA-Public Use
  Company Number: US-BAYER-2016-042932

PATIENT
  Age: 63 Year
  Sex: Male
  Weight: 31.75 kg

DRUGS (4)
  1. ADEMPAS [Suspect]
     Active Substance: RIOCIGUAT
     Indication: PULMONARY HYPERTENSION
     Dosage: UNK
     Dates: start: 20151119
  2. WARFARIN [Concomitant]
     Active Substance: WARFARIN
  3. COUMADIN [Concomitant]
     Active Substance: WARFARIN SODIUM
  4. ADEMPAS [Suspect]
     Active Substance: RIOCIGUAT
     Indication: PULMONARY HYPERTENSION
     Dosage: 1.5 MG, TID (LAST SHIPPED 23-FEB-2016)
     Route: 048

REACTIONS (14)
  - Fluid overload [Unknown]
  - Dyspnoea [Unknown]
  - Altered state of consciousness [Unknown]
  - Fluid retention [None]
  - Weight decreased [Unknown]
  - Hospitalisation [None]
  - Abdominal distension [Unknown]
  - Pancreatitis [Unknown]
  - Dysarthria [Unknown]
  - Abdominal pain upper [Unknown]
  - Abdominal discomfort [Unknown]
  - Pancreatic enlargement [Unknown]
  - Drug dose omission [None]
  - Anal incontinence [Unknown]

NARRATIVE: CASE EVENT DATE: 20160410
